FAERS Safety Report 6692703-3 (Version None)
Quarter: 2010Q2

REPORT INFORMATION
  Report Type: 
  Country: None (occurrence: None)
  Receive Date: 20100422
  Receipt Date: 20100413
  Transmission Date: 20101027
  Serious: Yes (Death, Hospitalization)
  Sender: FDA-Public Use
  Company Number: CN-BAXTER-2010BH009077

PATIENT
  Age: 54 Year
  Sex: Male

DRUGS (1)
  1. DIANEAL [Suspect]
     Indication: RENAL FAILURE
     Route: 033
     Dates: start: 20021127, end: 20100201

REACTIONS (4)
  - CHOLECYSTITIS [None]
  - FUNGAL PERITONITIS [None]
  - INTESTINAL OBSTRUCTION [None]
  - MEDICAL DEVICE COMPLICATION [None]
